FAERS Safety Report 10354694 (Version 1)
Quarter: 2014Q3

REPORT INFORMATION
  Report Type: Report from Study
  Country: US (occurrence: US)
  Receive Date: 20140731
  Receipt Date: 20140731
  Transmission Date: 20150326
  Serious: Yes (Hospitalization, Other)
  Sender: FDA-Public Use
  Company Number: GXBR2014US001763

PATIENT
  Sex: Female

DRUGS (1)
  1. ENOXAPARIN SODIUM. [Suspect]
     Active Substance: ENOXAPARIN SODIUM
     Indication: PANCREATIC CARCINOMA
     Dosage: 100 MG, QD
     Route: 058

REACTIONS (2)
  - Oncologic complication [Unknown]
  - Haemorrhage intracranial [Unknown]
